FAERS Safety Report 12397752 (Version 1)
Quarter: 2016Q2

REPORT INFORMATION
  Report Type: Spontaneous
  Country: US (occurrence: None)
  Receive Date: 20160523
  Receipt Date: 20160523
  Transmission Date: 20160815
  Serious: Yes (Other)
  Sender: FDA-Public Use
  Company Number: None

PATIENT
  Age: 4 Year
  Sex: Male
  Weight: 21.77 kg

DRUGS (3)
  1. NASAQUART [Concomitant]
  2. SALINE SPRAY [Concomitant]
  3. COPPERTONE SPORT SPF [Suspect]
     Active Substance: AVOBENZONE\OCTISALATE\OCTOCRYLENE\OXYBENZONE
     Indication: PROPHYLAXIS AGAINST SOLAR RADIATION
     Route: 061
     Dates: start: 20160404, end: 20160404

REACTIONS (2)
  - Accidental exposure to product [None]
  - Rash [None]

NARRATIVE: CASE EVENT DATE: 20160404
